FAERS Safety Report 10987253 (Version 2)
Quarter: 2015Q2

REPORT INFORMATION
  Report Type: Spontaneous
  Country: US (occurrence: US)
  Receive Date: 20150404
  Receipt Date: 20150525
  Transmission Date: 20150821
  Serious: Yes (Other)
  Sender: FDA-Public Use
  Company Number: US-JNJFOC-20130106022

PATIENT

DRUGS (1)
  1. INFLIXIMAB, RECOMBINANT [Suspect]
     Active Substance: INFLIXIMAB
     Indication: AUTOIMMUNE DISORDER
     Route: 042

REACTIONS (6)
  - Demyelination [Unknown]
  - Guillain-Barre syndrome [Unknown]
  - Multiple sclerosis [Unknown]
  - Demyelinating polyneuropathy [Unknown]
  - Optic neuritis [Unknown]
  - Neuropathy peripheral [Unknown]
